FAERS Safety Report 10501614 (Version 1)
Quarter: 2014Q4

REPORT INFORMATION
  Report Type: Spontaneous
  Country: US (occurrence: None)
  Receive Date: 20141006
  Receipt Date: 20141006
  Transmission Date: 20150528
  Serious: Yes (Disabling, Other)
  Sender: FDA-Public Use
  Company Number: None

PATIENT
  Age: 19 Year
  Sex: Female
  Weight: 54.43 kg

DRUGS (1)
  1. MIRENA [Suspect]
     Active Substance: LEVONORGESTREL

REACTIONS (9)
  - Nausea [None]
  - Vomiting [None]
  - Muscle spasms [None]
  - Educational problem [None]
  - Vaginal haemorrhage [None]
  - Activities of daily living impaired [None]
  - Headache [None]
  - Migraine [None]
  - Pain [None]

NARRATIVE: CASE EVENT DATE: 20141003
